FAERS Safety Report 22690075 (Version 7)
Quarter: 2025Q1

REPORT INFORMATION
  Report Type: Report from Study
  Country: US (occurrence: US)
  Receive Date: 20230711
  Receipt Date: 20250211
  Transmission Date: 20250409
  Serious: Yes (Other)
  Sender: GLAXOSMITHKLINE
  Company Number: US-GLAXOSMITHKLINE-US2023AMR093590

PATIENT
  Sex: Female

DRUGS (2)
  1. NIRAPARIB [Suspect]
     Active Substance: NIRAPARIB
     Indication: Product used for unknown indication
     Dosage: 200 MG, QD
     Route: 048
  2. NIRAPARIB [Suspect]
     Active Substance: NIRAPARIB
     Indication: Ovarian cancer
     Dosage: 200 MG, QD
     Route: 048

REACTIONS (13)
  - Hallucination, visual [Unknown]
  - Muscle spasms [Recovering/Resolving]
  - Diarrhoea [Recovered/Resolved]
  - Heart rate increased [Unknown]
  - Lymphadenitis [Unknown]
  - Constipation [Unknown]
  - Dysuria [Unknown]
  - Dry mouth [Unknown]
  - Hunger [Unknown]
  - Anxiety disorder [Unknown]
  - Malaise [Unknown]
  - Extra dose administered [Unknown]
  - Product dose omission issue [Unknown]
